FAERS Safety Report 10755255 (Version 1)
Quarter: 2015Q1

REPORT INFORMATION
  Report Type: Spontaneous
  Country: US (occurrence: None)
  Receive Date: 20150123
  Receipt Date: 20150123
  Transmission Date: 20150721
  Serious: Yes (Other)
  Sender: FDA-Public Use
  Company Number: TAP2007Q01108

PATIENT
  Age: 3 Month
  Sex: Male
  Weight: 6.35 kg

DRUGS (1)
  1. PREVACID SOLUTAB [Suspect]
     Active Substance: LANSOPRAZOLE
     Indication: GASTROOESOPHAGEAL REFLUX DISEASE
     Route: 048
     Dates: start: 20070727, end: 20070801

REACTIONS (1)
  - Deafness [None]

NARRATIVE: CASE EVENT DATE: 20070801
